FAERS Safety Report 6151854-2 (Version None)
Quarter: 2009Q2

REPORT INFORMATION
  Report Type: 
  Country: None (occurrence: None)
  Receive Date: 20090410
  Receipt Date: 20090403
  Transmission Date: 20091009
  Serious: Yes (Death, Hospitalization)
  Sender: FDA-Public Use
  Company Number: US-AMGEN-US336550

PATIENT
  Sex: Male
  Weight: 75 kg

DRUGS (9)
  1. NPLATE [Suspect]
     Indication: IDIOPATHIC THROMBOCYTOPENIC PURPURA
     Route: 058
     Dates: start: 20080904, end: 20081002
  2. CORTICOSTEROIDS [Concomitant]
  3. COREG [Concomitant]
     Route: 048
     Dates: start: 20080904, end: 20080928
  4. PROCRIT [Concomitant]
     Dates: start: 20080909, end: 20080909
  5. ACYCLOVIR [Concomitant]
     Route: 048
     Dates: start: 20080904, end: 20081005
  6. ALLOPURINOL [Concomitant]
     Dates: start: 20080910, end: 20080928
  7. MORPHINE [Concomitant]
     Route: 042
  8. FLOMAX [Concomitant]
     Route: 048
  9. PLATELETS [Concomitant]
     Dates: start: 20080901

REACTIONS (4)
  - HALLUCINATION [None]
  - MALIGNANT NEOPLASM PROGRESSION [None]
  - MALIGNANT PLEURAL EFFUSION [None]
  - RESPIRATORY FAILURE [None]
